FAERS Safety Report 9466912 (Version 1)
Quarter: 2013Q3

REPORT INFORMATION
  Report Type: Spontaneous
  Country: FI (occurrence: FI)
  Receive Date: 20130820
  Receipt Date: 20130820
  Transmission Date: 20140515
  Serious: Yes (Death)
  Sender: FDA-Public Use
  Company Number: FI-ELI_LILLY_AND_COMPANY-FI201308004842

PATIENT
  Age: 76 Year
  Sex: Male

DRUGS (2)
  1. HUMAN INSULIN [Suspect]
     Dosage: UNK
     Dates: start: 201307
  2. LANTUS [Suspect]

REACTIONS (1)
  - Hypoglycaemia [Fatal]
